FAERS Safety Report 23742517 (Version 5)
Quarter: 2024Q3

REPORT INFORMATION
  Report Type: Report from Study
  Country: JP (occurrence: JP)
  Receive Date: 20240415
  Receipt Date: 20240827
  Transmission Date: 20241016
  Serious: Yes (Other)
  Sender: PFIZER
  Company Number: JP-ONO-2024JP007744

PATIENT
  Age: 58 Year
  Sex: Male
  Weight: 70 kg

DRUGS (9)
  1. BRAFTOVI [Suspect]
     Active Substance: ENCORAFENIB
     Indication: Colon cancer
     Dosage: 300 MG, EVERYDAY
     Route: 048
     Dates: start: 20221220, end: 20230606
  2. MEKTOVI [Suspect]
     Active Substance: BINIMETINIB
     Indication: Colon cancer
     Dosage: 90 MG, EVERYDAY
     Route: 048
     Dates: start: 20221220, end: 20230606
  3. CETUXIMAB [Suspect]
     Active Substance: CETUXIMAB
     Indication: Colon cancer
     Dosage: 400 MG/M2
     Route: 065
     Dates: start: 20221220, end: 20221220
  4. CETUXIMAB [Suspect]
     Active Substance: CETUXIMAB
     Dosage: 250 MG/M2
     Route: 065
     Dates: start: 20221227, end: 20221227
  5. CETUXIMAB [Suspect]
     Active Substance: CETUXIMAB
     Dosage: 200 MG/M2
     Route: 065
     Dates: start: 20230106, end: 20230106
  6. CETUXIMAB [Suspect]
     Active Substance: CETUXIMAB
     Dosage: 200 MG/M2
     Route: 065
     Dates: start: 20230124, end: 20230124
  7. CETUXIMAB [Suspect]
     Active Substance: CETUXIMAB
     Dosage: 200 MG/M2
     Route: 065
     Dates: start: 20230207
  8. CETUXIMAB [Suspect]
     Active Substance: CETUXIMAB
     Dosage: 200 MG/M2
     Route: 065
     Dates: end: 20230418
  9. CETUXIMAB [Suspect]
     Active Substance: CETUXIMAB
     Dosage: 150 MG/M2
     Route: 065
     Dates: start: 20230509, end: 20230530

REACTIONS (11)
  - Eosinophilic pneumonia [Recovered/Resolved]
  - Gastritis [Recovering/Resolving]
  - Diarrhoea [Recovered/Resolved]
  - Fatigue [Recovered/Resolved]
  - Malaise [Recovered/Resolved]
  - Eosinophilia [Recovering/Resolving]
  - Dermatitis acneiform [Recovered/Resolved]
  - Dry skin [Recovered/Resolved]
  - Off label use [Unknown]
  - Product use issue [Unknown]
  - Off label use [Unknown]

NARRATIVE: CASE EVENT DATE: 20221227
